FAERS Safety Report 10177744 (Version 1)
Quarter: 2014Q2

REPORT INFORMATION
  Report Type: Spontaneous
  Country: US (occurrence: US)
  Receive Date: 20140516
  Receipt Date: 20140516
  Transmission Date: 20141212
  Serious: No
  Sender: FDA-Public Use
  Company Number: US-SANOFI-AVENTIS-2013SA051478

PATIENT
  Age: 70 Year
  Sex: Female

DRUGS (4)
  1. APIDRA SOLOSTAR [Suspect]
     Indication: DIABETES MELLITUS
     Route: 058
     Dates: start: 20130517
  2. LANTUS [Suspect]
  3. PREDNISONE [Suspect]
  4. SOLOSTAR [Concomitant]
     Indication: DIABETES MELLITUS
     Dates: start: 20130517

REACTIONS (3)
  - Jaundice [Unknown]
  - Blood glucose increased [Recovering/Resolving]
  - Wrong technique in drug usage process [Unknown]
